FAERS Safety Report 4503509-5 (Version None)
Quarter: 2004Q4

REPORT INFORMATION
  Report Type: 
  Country: None (occurrence: None)
  Receive Date: 20041112
  Receipt Date: 20041101
  Transmission Date: 20050328
  Serious: Yes (Hospitalization)
  Sender: FDA-Public Use
  Company Number: 2002092988IT

PATIENT
  Age: 72 Year
  Sex: Male

DRUGS (4)
  1. CAMPTOSAR [Suspect]
     Indication: COLON CANCER
     Dosage: 298 MG, CYCLIC, IV
     Route: 042
     Dates: start: 20020204, end: 20020204
  2. FLUOROURACIL [Suspect]
     Indication: COLON CANCER
     Dosage: 664 MG, CYCLIC, IV BOLUS
     Route: 040
     Dates: start: 20020204, end: 20020205
  3. LEUCOVORIN CALCIUM [Suspect]
     Indication: COLON CANCER
     Dosage: 166 MG, CYCLIC, IV
     Route: 042
     Dates: start: 20020204, end: 20020205
  4. FLUOROURACILE (FLUOROURACIL) SOLUTON, STERILE [Suspect]
     Dosage: 996 MG, CYCLIC, IV
     Route: 042
     Dates: start: 20020204, end: 20020205

REACTIONS (1)
  - PRINZMETAL ANGINA [None]
